FAERS Safety Report 13030459 (Version 1)
Quarter: 2016Q4

REPORT INFORMATION
  Report Type: Not Available
  Country: None (occurrence: US)
  Receive Date: 20161215
  Receipt Date: 20161215
  Transmission Date: 20170207
  Serious: No
  Sender: FDA-Public Use
  Company Number: US-AKORN-45325

PATIENT
  Sex: Male

DRUGS (1)
  1. BRIMONIDINE TARTRATE OPHTHALMIC SOLUTION0.2% [Suspect]
     Active Substance: BRIMONIDINE TARTRATE

REACTIONS (2)
  - Product packaging issue [None]
  - Foreign body sensation in eyes [None]
